FAERS Safety Report 21711162 (Version 2)
Quarter: 2022Q4

REPORT INFORMATION
  Report Type: Spontaneous
  Country: ES (occurrence: ES)
  Receive Date: 20221212
  Receipt Date: 20221223
  Transmission Date: 20230113
  Serious: Yes (Hospitalization, Other)
  Sender: FDA-Public Use
  Company Number: ES-SA-SAC20221207001615

PATIENT
  Sex: Female

DRUGS (4)
  1. PYRAZINAMIDE [Suspect]
     Active Substance: PYRAZINAMIDE
     Indication: Congenital tuberculosis
     Dosage: 35 MG/KG, QD
  2. RIFAMPIN [Concomitant]
     Active Substance: RIFAMPIN
     Indication: Congenital tuberculosis
     Dosage: 20 MG/KG, QD
  3. ISONIAZID [Concomitant]
     Active Substance: ISONIAZID
     Indication: Congenital tuberculosis
     Dosage: 15 MG/KG, QD
  4. AMIKACIN [Concomitant]
     Active Substance: AMIKACIN
     Indication: Congenital tuberculosis
     Dosage: 15 MG/KG, QD

REACTIONS (1)
  - Hepatotoxicity [Unknown]
